FAERS Safety Report 8508832-5 (Version None)
Quarter: 2012Q3

REPORT INFORMATION
  Report Type: 
  Country: None (occurrence: None)
  Receive Date: 20120713
  Receipt Date: 20120710
  Transmission Date: 20120928
  Serious: Yes (Other)
  Sender: FDA-Public Use
  Company Number: US-PFIZER INC-2012025586

PATIENT
  Sex: Female
  Weight: 72.6 kg

DRUGS (12)
  1. PANTOPRAZOLE SODIUM [Concomitant]
     Dosage: 40 MG, 1X/DAY IN AM (FORMULATION: TEBC)
  2. CYANOCOBALAMIN [Concomitant]
     Dosage: 1000 MCG CR-TABS, ONE TAB EVERY OTHER DAY AT DINNER
  3. LOVASTATIN [Concomitant]
     Dosage: 40 MG, 2 TAB AT HS
  4. SUTENT [Suspect]
     Dosage: 37.5 MG, 1X/DAY (4 WEEKS ON/ 2 WEEKS OFF, DOSE REDUCED ON 11JUL2012)
     Dates: start: 20110711, end: 20120101
  5. GLIPIZIDE [Concomitant]
     Indication: DIABETES MELLITUS
     Dosage: 5 MG, UNK
  6. LEVOTHROID [Concomitant]
     Dosage: 112 MCG TABS 1 TABLET DAILY IN THE AM
  7. GLIPIZIDE [Concomitant]
     Dosage: 2.5 MG, 1 TAB PO Q OTHER DAY
     Route: 048
  8. VITAMIN B-12 [Concomitant]
     Dosage: 1 TABLET EVERY OTHER DAY AT DINNER
  9. SUTENT [Suspect]
     Indication: RENAL CELL CARCINOMA
     Dosage: 50 MG, 1X/DAY
     Route: 048
     Dates: start: 20110601
  10. HYDROCHLOROTHIAZIDE [Concomitant]
     Dosage: 12.5 MG, 1X/DAY IN AM
  11. TYLENOL PM, EXTRA STRENGTH [Concomitant]
     Dosage: 500-25 MG TAB
  12. RANITIDINE HYDROCHLORIDE [Concomitant]
     Dosage: 1 TABLET AT BEDTIME

REACTIONS (13)
  - CONSTIPATION [None]
  - BLOOD GLUCOSE DECREASED [None]
  - PANCREATITIS [None]
  - EPISTAXIS [None]
  - GLOSSODYNIA [None]
  - MALAISE [None]
  - DIARRHOEA [None]
  - LETHARGY [None]
  - STOMATITIS [None]
  - ABDOMINAL PAIN UPPER [None]
  - NAUSEA [None]
  - VOMITING [None]
  - MUSCULOSKELETAL CHEST PAIN [None]
